FAERS Safety Report 9837556 (Version 1)
Quarter: 2014Q1

REPORT INFORMATION
  Report Type: Spontaneous
  Country: US (occurrence: None)
  Receive Date: 20140117
  Receipt Date: 20140117
  Transmission Date: 20141002
  Serious: Yes (Other)
  Sender: FDA-Public Use
  Company Number: None

PATIENT
  Age: 55 Year
  Sex: Male

DRUGS (4)
  1. LIDOCAINE [Suspect]
     Indication: NEUROPATHY PERIPHERAL
     Dates: start: 20130325
  2. CENTRUM SILVER [Concomitant]
  3. LOW DOSE HEART ASPIRIN [Concomitant]
  4. VITAMIN D [Concomitant]

REACTIONS (6)
  - Nausea [None]
  - Blood glucose increased [None]
  - Vertigo [None]
  - Dizziness [None]
  - Neuralgia [None]
  - Condition aggravated [None]
